FAERS Safety Report 24103250 (Version 1)
Quarter: 2024Q3

REPORT INFORMATION
  Report Type: Report from Study
  Country: US (occurrence: None)
  Receive Date: 20240717
  Receipt Date: 20240717
  Transmission Date: 20241017
  Serious: Yes (Other)
  Sender: ASTRAZENECA
  Company Number: 2020SF07341

PATIENT
  Age: 50 Year
  Sex: Female

DRUGS (1)
  1. BYDUREON [Suspect]
     Active Substance: EXENATIDE
     Indication: Type 2 diabetes mellitus
     Route: 058

REACTIONS (3)
  - Loss of consciousness [Unknown]
  - Weight decreased [Unknown]
  - Impaired gastric emptying [Not Recovered/Not Resolved]
